FAERS Safety Report 7118123-5 (Version None)
Quarter: 2010Q4

REPORT INFORMATION
  Report Type: 
  Country: None (occurrence: None)
  Receive Date: 20101123
  Receipt Date: 20101115
  Transmission Date: 20110411
  Serious: No
  Sender: FDA-Public Use
  Company Number: US-PFIZER INC-2010148695

PATIENT
  Sex: Female

DRUGS (1)
  1. LYRICA [Suspect]
     Dosage: 300 MG, 3X/DAY
     Dates: start: 20100101

REACTIONS (3)
  - FEELING DRUNK [None]
  - PALPITATIONS [None]
  - TOOTHACHE [None]
